FAERS Safety Report 10470043 (Version 2)
Quarter: 2014Q3

REPORT INFORMATION
  Report Type: Report from Study
  Country: FR (occurrence: FR)
  Receive Date: 20140923
  Receipt Date: 20140923
  Transmission Date: 20150326
  Serious: Yes (Life-Threatening, Other)
  Sender: FDA-Public Use
  Company Number: FR-BAYER-2014-109842

PATIENT
  Age: 65 Year
  Sex: Male

DRUGS (5)
  1. TAHOR [Concomitant]
     Active Substance: ATORVASTATIN CALCIUM
  2. ZYLORIC [Concomitant]
     Active Substance: ALLOPURINOL
     Dosage: UNK
     Dates: start: 2000
  3. REGORAFENIB [Suspect]
     Active Substance: REGORAFENIB
     Indication: COLORECTAL CANCER METASTATIC
     Dosage: 160 MG, UNK
     Route: 048
     Dates: start: 20130423
  4. TRIATEC [Concomitant]
     Active Substance: RAMIPRIL
     Dosage: UNK
     Dates: start: 1997
  5. KARDEGIC [Concomitant]
     Active Substance: ASPIRIN LYSINE
     Dosage: UNK
     Dates: start: 1997

REACTIONS (1)
  - Skin toxicity [Recovered/Resolved]

NARRATIVE: CASE EVENT DATE: 20130503
